FAERS Safety Report 10061412 (Version 1)
Quarter: 2014Q2

REPORT INFORMATION
  Report Type: Spontaneous
  Country: US (occurrence: US)
  Receive Date: 20140407
  Receipt Date: 20140407
  Transmission Date: 20141212
  Serious: Yes (Hospitalization)
  Sender: FDA-Public Use
  Company Number: US-BAYER-2014-047410

PATIENT
  Age: 25 Year
  Sex: Female
  Weight: 59.86 kg

DRUGS (5)
  1. YAZ [Suspect]
  2. IMITREX [Concomitant]
  3. RECLIPSEN [Concomitant]
  4. REGLAN [Concomitant]
  5. VICODIN [Concomitant]

REACTIONS (1)
  - Pulmonary embolism [Recovering/Resolving]
